FAERS Safety Report 8134920-1 (Version None)
Quarter: 2012Q1

REPORT INFORMATION
  Report Type: 
  Country: None (occurrence: None)
  Receive Date: 20120214
  Receipt Date: 20120209
  Transmission Date: 20120608
  Serious: Yes (Hospitalization)
  Sender: FDA-Public Use
  Company Number: US-B.I. PHARMACEUTICALS,INC./RIDGEFIELD-2012-BP-02556BP

PATIENT
  Sex: Male

DRUGS (19)
  1. SOMA [Concomitant]
     Indication: TREMOR
     Route: 048
     Dates: start: 20111201
  2. CARDIA [Concomitant]
     Indication: CARDIOVASCULAR EVENT PROPHYLAXIS
     Dosage: 180 MG
     Route: 048
  3. LEVOTHYROXINE SODIUM [Concomitant]
     Indication: HYPOTHYROIDISM
     Route: 048
  4. HYDROCODONE [Concomitant]
     Indication: ARTHRITIS
     Route: 048
     Dates: start: 20100601
  5. MULTI-VITAMINS [Concomitant]
     Indication: PROPHYLAXIS
     Route: 048
  6. TEMAZEPAM [Concomitant]
     Indication: INSOMNIA
     Route: 048
     Dates: start: 20090101
  7. MULTIVITAMIN [Concomitant]
     Indication: MACULAR DEGENERATION
  8. SPIRIVA [Suspect]
     Indication: CHRONIC OBSTRUCTIVE PULMONARY DISEASE
     Route: 055
     Dates: start: 20070101
  9. HYDROCODONE [Concomitant]
     Indication: HEADACHE
  10. VALIUM [Concomitant]
     Indication: TREMOR
     Route: 048
     Dates: start: 19920101
  11. LIPITOR [Concomitant]
     Indication: BLOOD CHOLESTEROL INCREASED
     Dosage: 25 MG
     Route: 048
  12. PRILOSEC [Concomitant]
     Indication: GASTROOESOPHAGEAL REFLUX DISEASE
     Route: 048
  13. HYDROCODONE [Concomitant]
     Indication: NECK PAIN
  14. LUNG SUPPORT [Concomitant]
     Indication: LUNG DISORDER
     Route: 048
     Dates: start: 20120101
  15. LASIX [Concomitant]
     Indication: HYPERTENSION
     Dosage: 20 MG
     Route: 048
  16. THEOPHYLLINE [Concomitant]
     Indication: LUNG DISORDER
     Dosage: 400 MG
     Route: 048
  17. MAGNESIUM [Concomitant]
     Indication: MUSCLE SPASMS
     Route: 048
  18. POTASSIUM [Concomitant]
     Indication: ELECTROLYTE SUBSTITUTION THERAPY
     Dosage: 10 MG
     Route: 048
  19. VITAMIN D [Concomitant]
     Indication: PROPHYLAXIS
     Dosage: 2000 U
     Route: 048

REACTIONS (4)
  - HYPERTENSION [None]
  - HEART RATE INCREASED [None]
  - PNEUMONIA [None]
  - FATIGUE [None]
